FAERS Safety Report 15068526 (Version 1)
Quarter: 2018Q2

REPORT INFORMATION
  Report Type: Spontaneous
  Country: US (occurrence: US)
  Receive Date: 20180626
  Receipt Date: 20180626
  Transmission Date: 20180711
  Serious: No
  Sender: FDA-Public Use
  Company Number: US-AMGEN-USASP2017130882

PATIENT
  Age: 73 Year
  Sex: Male

DRUGS (3)
  1. AVASTIN [Suspect]
     Active Substance: BEVACIZUMAB
     Indication: BRAIN CANCER METASTATIC
     Dosage: UNK UNK, Q2WK
     Route: 065
  2. NEULASTA [Suspect]
     Active Substance: PEGFILGRASTIM
     Indication: PRODUCT USED FOR UNKNOWN INDICATION
     Dosage: UNK
     Route: 065
     Dates: start: 20170825
  3. CARBOPLATIN. [Suspect]
     Active Substance: CARBOPLATIN
     Indication: BRAIN CANCER METASTATIC
     Dosage: UNK UNK, Q4WK
     Route: 065

REACTIONS (4)
  - Drug monitoring procedure incorrectly performed [Unknown]
  - Erythema [Recovered/Resolved]
  - Wrong technique in product usage process [Unknown]
  - Dizziness [Recovered/Resolved]

NARRATIVE: CASE EVENT DATE: 20170825
